FAERS Safety Report 7964422-4 (Version None)
Quarter: 2011Q4

REPORT INFORMATION
  Report Type: 
  Country: None (occurrence: None)
  Receive Date: 20111208
  Receipt Date: 20111208
  Transmission Date: 20120403
  Serious: Yes (Other)
  Sender: FDA-Public Use
  Company Number: CN-PFIZER INC-2011299112

PATIENT
  Age: 30 Year
  Sex: Male

DRUGS (1)
  1. ZIPRASIDONE HYDROCHLORIDE [Suspect]
     Dosage: UNK
     Route: 048

REACTIONS (2)
  - HALLUCINATION, AUDITORY [None]
  - HAEMATOCHEZIA [None]
